FAERS Safety Report 11348234 (Version 1)
Quarter: 2015Q3

REPORT INFORMATION
  Report Type: Other
  Country: TR (occurrence: TR)
  Receive Date: 20150806
  Receipt Date: 20150806
  Transmission Date: 20151125
  Serious: Yes (Hospitalization)
  Sender: FDA-Public Use
  Company Number: TR-ENDO PHARMACEUTICALS INC-2015-002081

PATIENT
  Age: 74 Year
  Sex: Male

DRUGS (6)
  1. CARVEDILOL. [Concomitant]
     Active Substance: CARVEDILOL
     Indication: CARDIAC FAILURE CHRONIC
  2. SPIRONOLACTONE/HYDROCHLOROTHIAZIDE [Concomitant]
     Indication: CARDIAC FAILURE CHRONIC
  3. SPIRONOLACTONE/HYDROCHLOROTHIAZIDE [Concomitant]
     Indication: CARDIAC FAILURE CHRONIC
  4. WARFARIN [Concomitant]
     Active Substance: WARFARIN
     Indication: CARDIAC FAILURE CHRONIC
  5. TRANDOLAPRIL. [Concomitant]
     Active Substance: TRANDOLAPRIL
     Indication: CARDIAC FAILURE CHRONIC
  6. LEVETIRACTAM [Suspect]
     Active Substance: LEVETIRACETAM
     Indication: EPILEPSY
     Route: 065

REACTIONS (3)
  - Inappropriate antidiuretic hormone secretion [Recovered/Resolved]
  - Cardiac failure [None]
  - Condition aggravated [None]
